APPROVED DRUG PRODUCT: ESOMEPRAZOLE MAGNESIUM
Active Ingredient: ESOMEPRAZOLE MAGNESIUM
Strength: EQ 20MG BASE
Dosage Form/Route: CAPSULE, DELAYED RELEASE;ORAL
Application: A207193 | Product #001
Applicant: PERRIGO R AND D CO
Approved: Aug 18, 2017 | RLD: No | RS: No | Type: OTC